FAERS Safety Report 16476370 (Version 3)
Quarter: 2019Q3

REPORT INFORMATION
  Report Type: Spontaneous
  Country: US (occurrence: US)
  Receive Date: 20190626
  Receipt Date: 20190809
  Transmission Date: 20191004
  Serious: No
  Sender: FDA-Public Use
  Company Number: US-009507513-1906USA009269

PATIENT
  Age: 63 Year
  Sex: Female

DRUGS (3)
  1. INTRON A [Suspect]
     Active Substance: INTERFERON ALFA-2B
     Dosage: INJECTION, 2 MILLION INTERNATIONAL UNIT, TWICE WEEKLY
  2. INTRON A [Suspect]
     Active Substance: INTERFERON ALFA-2B
     Indication: POLYCYTHAEMIA VERA
     Dosage: INJECTION, 0.75-1 MIU (MILLION INTERNATIONAL UNIT), TWICE A WEEK
     Dates: start: 200006
  3. INTRON A [Suspect]
     Active Substance: INTERFERON ALFA-2B
     Dosage: INJECTION, 2 MILLION INTERNATIONAL UNIT, TWICE WEEKLY
     Dates: start: 2019

REACTIONS (5)
  - Red blood cell count increased [Recovering/Resolving]
  - Influenza like illness [Not Recovered/Not Resolved]
  - Blood test abnormal [Unknown]
  - Platelet count increased [Recovering/Resolving]
  - Product dispensing error [Unknown]

NARRATIVE: CASE EVENT DATE: 201812
